FAERS Safety Report 6108692-6 (Version None)
Quarter: 2009Q1

REPORT INFORMATION
  Report Type: 
  Country: None (occurrence: None)
  Receive Date: 20090305
  Receipt Date: 20090217
  Transmission Date: 20090719
  Serious: Yes (Life-Threatening, Hospitalization)
  Sender: FDA-Public Use
  Company Number: DSA_33283_2009

PATIENT
  Sex: Male

DRUGS (17)
  1. DILTIAZEM HYDROCHLORIDE [Suspect]
     Indication: DRUG USE FOR UNKNOWN INDICATION
     Dosage: 200 MG QD, ORAL
     Route: 048
     Dates: start: 20070418
  2. HEXAQUINE (HEXAQUINE) 152 MG (NOT SPECIFIED) [Suspect]
     Indication: MUSCLE SPASMS
     Dosage: 1 DF TID, ORAL
     Route: 048
     Dates: start: 20080529, end: 20081217
  3. INIPOMP /01263201/ (INIPOMP PANTOPRAZOLE) 40 MG (NOT SPECIFIED) [Suspect]
     Indication: DRUG USE FOR UNKNOWN INDICATION
     Dosage: 40 MG QD, ORAL
     Route: 048
     Dates: start: 20080529, end: 20081219
  4. ATORVASTATIN CALCIUM [Suspect]
     Indication: DRUG USE FOR UNKNOWN INDICATION
     Dosage: 10 MG QD, ORAL
     Route: 048
     Dates: start: 20080417, end: 20081219
  5. KEPPRA [Suspect]
     Indication: CONVULSION
     Dosage: 750 MG, QD, ORAL
     Route: 048
     Dates: start: 20080603, end: 20081219
  6. COLCHICINE (COLCHICINE) [Suspect]
     Indication: DRUG USE FOR UNKNOWN INDICATION
     Dosage: 1 DF QD, ORAL
     Route: 048
     Dates: start: 20080530, end: 20081219
  7. FUROSEMIDE [Suspect]
     Indication: DRUG USE FOR UNKNOWN INDICATION
     Dosage: 250 MG QD, 3 FOLLOWING DAYS AS NEEDED, ORAL
     Route: 048
     Dates: start: 20080601
  8. VASTAREL (VASTAREL - TRIMETAZIDINE HYDROCHLORIDE) (NOT SPECIFIED) [Suspect]
     Indication: DRUG USE FOR UNKNOWN INDICATION
     Dosage: 1 DF QD, ORAL
     Route: 048
     Dates: start: 20080530, end: 20081219
  9. ENGERIX B (ENGERIX B - HEPATITIS B VACCINE) 20 UG (NOT SPECIFIED) [Suspect]
     Indication: IMMUNISATION
     Dosage: 1 DF 1X,
     Dates: start: 20080701, end: 20080701
  10. CALCIDOSE [Concomitant]
  11. OXYNORM [Concomitant]
  12. RENAGEL [Concomitant]
  13. SPECIAFOLDINE [Concomitant]
  14. ONDANSETRON HCL [Concomitant]
  15. GAVISCON [Concomitant]
  16. FORLAX [Concomitant]
  17. ARANESP [Concomitant]

REACTIONS (5)
  - DERMATITIS BULLOUS [None]
  - GASTRIC ULCER HAEMORRHAGE [None]
  - ORAL MUCOSAL ERUPTION [None]
  - PURPURA [None]
  - THROMBOCYTOPENIA [None]
